FAERS Safety Report 7124745-8 (Version None)
Quarter: 2010Q4

REPORT INFORMATION
  Report Type: 
  Country: None (occurrence: None)
  Receive Date: 20101123
  Receipt Date: 20101123
  Transmission Date: 20110411
  Serious: Yes (Other)
  Sender: FDA-Public Use
  Company Number: None

PATIENT
  Sex: Female
  Weight: 63.5036 kg

DRUGS (1)
  1. MINOCYCLINE HCL [Suspect]
     Indication: DERMATITIS
     Dosage: 100 MG BID PO APPROX. 1 YEAR
     Route: 048
     Dates: start: 20090722, end: 20100825

REACTIONS (1)
  - NO ADVERSE EVENT [None]
